FAERS Safety Report 22314132 (Version 1)
Quarter: 2023Q2

REPORT INFORMATION
  Report Type: Spontaneous
  Country: US (occurrence: None)
  Receive Date: 20230511
  Receipt Date: 20230511
  Transmission Date: 20230722
  Serious: No
  Sender: FDA-Public Use
  Company Number: None

PATIENT
  Age: 44 Year
  Sex: Female
  Weight: 64.23 kg

DRUGS (10)
  1. CAPECITABINE [Suspect]
     Active Substance: CAPECITABINE
     Dosage: 1500MG  Q12HOURS ORAL?
     Route: 048
     Dates: start: 202304, end: 20230509
  2. ALBUTEROL [Concomitant]
  3. ALEVE [Concomitant]
     Active Substance: NAPROXEN SODIUM
  4. AZITHROMYCIN [Concomitant]
  5. CEFDINIR [Concomitant]
     Active Substance: CEFDINIR
  6. LORAZEPAM [Concomitant]
  7. ONDANSETRON [Concomitant]
     Active Substance: ONDANSETRON
  8. PREDNISONE [Concomitant]
  9. TYLENOL [Concomitant]
     Active Substance: ACETAMINOPHEN
  10. VIT D3 [Concomitant]

REACTIONS (1)
  - Pneumonia [None]
